FAERS Safety Report 8804020 (Version 1)
Quarter: 2012Q4

REPORT INFORMATION
  Report Type: 
  Country: US (occurrence: US)
  Receive Date: 20120924
  Receipt Date: 20120924
  Transmission Date: 20130627
  Serious: Yes (Hospitalization)
  Sender: FDA-Public Use
  Company Number: US-BAYER-2012-096491

PATIENT
  Sex: Female

DRUGS (2)
  1. MIRENA [Suspect]
     Indication: CONTRACEPTION
     Dosage: 20 mcg/24hr, CONT
     Route: 015
     Dates: start: 20060713, end: 20110713
  2. MIRENA [Suspect]
     Indication: MENORRHAGIA
     Dosage: 20 mcg/24hr, CONT
     Route: 015
     Dates: start: 20110713

REACTIONS (3)
  - Thyroidectomy [None]
  - Alopecia [Not Recovered/Not Resolved]
  - Acne cystic [Not Recovered/Not Resolved]
